FAERS Safety Report 12524513 (Version 2)
Quarter: 2016Q4

REPORT INFORMATION
  Report Type: Report from Study
  Country: US (occurrence: US)
  Receive Date: 20160704
  Receipt Date: 20161003
  Transmission Date: 20170207
  Serious: Yes (Other)
  Sender: FDA-Public Use
  Company Number: US-AMGEN-USASL2016083305

PATIENT
  Age: 64 Year
  Sex: Female
  Weight: 80.27 kg

DRUGS (1)
  1. REPATHA [Suspect]
     Active Substance: EVOLOCUMAB
     Indication: HYPERCHOLESTEROLAEMIA
     Dosage: 140 MG, Q2WK
     Route: 065
     Dates: start: 20151104, end: 20160922

REACTIONS (7)
  - Amnesia [Recovering/Resolving]
  - Erythema [Not Recovered/Not Resolved]
  - Visual impairment [Unknown]
  - Balance disorder [Recovering/Resolving]
  - Anger [Unknown]
  - Mental disorder [Unknown]
  - Blood cholesterol decreased [Recovering/Resolving]

NARRATIVE: CASE EVENT DATE: 201601
